FAERS Safety Report 13824331 (Version 6)
Quarter: 2017Q4

REPORT INFORMATION
  Report Type: Spontaneous
  Country: US (occurrence: US)
  Receive Date: 20170802
  Receipt Date: 20171225
  Transmission Date: 20180320
  Serious: Yes (Other)
  Sender: FDA-Public Use
  Company Number: PHEH2017US024065

PATIENT
  Sex: Female
  Weight: 61.22 kg

DRUGS (3)
  1. ZOFRAN [Suspect]
     Active Substance: ONDANSETRON HYDROCHLORIDE
     Dosage: 1 DF, Q8H
     Route: 048
     Dates: start: 20030110, end: 20030508
  2. ZOFRAN [Suspect]
     Active Substance: ONDANSETRON HYDROCHLORIDE
     Dosage: 1 DF, Q8H
     Route: 048
     Dates: start: 20030603, end: 20030728
  3. ZOFRAN [Suspect]
     Active Substance: ONDANSETRON HYDROCHLORIDE
     Indication: VOMITING IN PREGNANCY
     Dosage: 01 DF, Q8H
     Route: 048
     Dates: start: 20021223, end: 20021230

REACTIONS (10)
  - Gestational hypertension [Unknown]
  - Emotional distress [Unknown]
  - Pre-eclampsia [Unknown]
  - Product use in unapproved indication [Unknown]
  - Anhedonia [Unknown]
  - Basedow^s disease [Unknown]
  - Maternal exposure during pregnancy [Unknown]
  - Pain [Unknown]
  - Anxiety [Unknown]
  - Injury [Unknown]
